FAERS Safety Report 7243926-6 (Version None)
Quarter: 2011Q1

REPORT INFORMATION
  Report Type: 
  Country: None (occurrence: None)
  Receive Date: 20110125
  Receipt Date: 20110118
  Transmission Date: 20110831
  Serious: Yes (Hospitalization)
  Sender: FDA-Public Use
  Company Number: B0694132A

PATIENT
  Age: 82 Year
  Sex: Female

DRUGS (6)
  1. PAROXETINE HCL [Suspect]
     Dosage: 1UNIT PER DAY
     Route: 048
  2. MEDIATENSYL [Concomitant]
     Dosage: 60MG TWICE PER DAY
     Route: 048
  3. AROMASIN [Concomitant]
     Dosage: 25MG PER DAY
     Route: 048
  4. SELOKEN [Concomitant]
     Dosage: 100MG PER DAY
     Route: 048
     Dates: end: 20101208
  5. LISINOPRIL [Concomitant]
     Dosage: 20MG PER DAY
     Route: 048
     Dates: end: 20101202
  6. TRIMETAZIDINE [Concomitant]
     Dosage: 1UNIT PER DAY
     Route: 048

REACTIONS (8)
  - CONFUSIONAL STATE [None]
  - HYPERTHERMIA [None]
  - BRAIN OEDEMA [None]
  - SUBARACHNOID HAEMORRHAGE [None]
  - ENURESIS [None]
  - DISORIENTATION [None]
  - CEREBRAL HAEMATOMA [None]
  - AGITATION [None]
